FAERS Safety Report 12411445 (Version 1)
Quarter: 2016Q2

REPORT INFORMATION
  Report Type: Spontaneous
  Country: US (occurrence: US)
  Receive Date: 20160527
  Receipt Date: 20160527
  Transmission Date: 20160815
  Serious: No
  Sender: FDA-Public Use
  Company Number: US-BIOGEN-2016BI00236534

PATIENT
  Sex: Female

DRUGS (1)
  1. TECFIDERA [Suspect]
     Active Substance: DIMETHYL FUMARATE
     Indication: MULTIPLE SCLEROSIS

REACTIONS (8)
  - Vomiting [Unknown]
  - Flushing [Unknown]
  - Asthenia [Unknown]
  - Gastric disorder [Unknown]
  - Dyspnoea [Unknown]
  - Hyperventilation [Unknown]
  - Nausea [Unknown]
  - Gastrooesophageal reflux disease [Unknown]
